FAERS Safety Report 18553680 (Version 16)
Quarter: 2022Q4

REPORT INFORMATION
  Report Type: Report from Study
  Country: PA (occurrence: PA)
  Receive Date: 20201127
  Receipt Date: 20221227
  Transmission Date: 20230113
  Serious: Yes (Other)
  Sender: FDA-Public Use
  Company Number: NVSC2020PA296945

PATIENT
  Age: 69 Year
  Sex: Female
  Weight: 37 kg

DRUGS (16)
  1. KISQALI [Suspect]
     Active Substance: RIBOCICLIB
     Indication: Breast cancer metastatic
     Dosage: 600 MG, QD
     Route: 048
     Dates: start: 20201027
  2. KISQALI [Suspect]
     Active Substance: RIBOCICLIB
     Dosage: 600 MG, QD
     Route: 048
     Dates: start: 20201028
  3. KISQALI [Suspect]
     Active Substance: RIBOCICLIB
     Dosage: 600 MG, QD
     Route: 048
     Dates: start: 20201031
  4. KISQALI [Suspect]
     Active Substance: RIBOCICLIB
     Dosage: 400 MG, QD
     Route: 048
     Dates: start: 20201031
  5. KISQALI [Suspect]
     Active Substance: RIBOCICLIB
     Dosage: 600 MG, QD
     Route: 065
     Dates: start: 202011
  6. ANASTROZOLE [Suspect]
     Active Substance: ANASTROZOLE
     Indication: Breast cancer metastatic
     Dosage: UNK
     Route: 065
  7. ANASTROZOLE [Suspect]
     Active Substance: ANASTROZOLE
     Indication: Metastases to bone
     Dosage: 1 DOSAGE FORM, QD
     Route: 065
     Dates: start: 202010
  8. ANASTROZOLE [Suspect]
     Active Substance: ANASTROZOLE
     Dosage: 1 MG, QD
     Route: 048
  9. GABAPENTIN [Suspect]
     Active Substance: GABAPENTIN
     Indication: Pain
     Dosage: UNK (2 OT)
     Route: 065
  10. GABAPENTIN [Suspect]
     Active Substance: GABAPENTIN
     Dosage: 2 DOSAGE FORM, QD
     Route: 065
  11. GABAPENTIN [Suspect]
     Active Substance: GABAPENTIN
     Dosage: UNK, QD
     Route: 048
  12. TRAMADOL [Suspect]
     Active Substance: TRAMADOL
     Indication: Pain
     Dosage: 2 DOSAGE FORM, QD
     Route: 065
     Dates: start: 2009
  13. FULVESTRANT [Suspect]
     Active Substance: FULVESTRANT
     Indication: Product used for unknown indication
     Dosage: UNK
     Route: 065
  14. MORPHINE [Suspect]
     Active Substance: MORPHINE
     Indication: Pain
     Dosage: UNK
     Route: 065
  15. LIDOCAINE [Concomitant]
     Active Substance: LIDOCAINE
     Indication: Product used for unknown indication
     Dosage: UNK (PATCHES)
     Route: 065
  16. CAL MAG D [Concomitant]
     Indication: Product used for unknown indication
     Dosage: UNK
     Route: 065

REACTIONS (59)
  - Angina pectoris [Unknown]
  - Arrhythmia [Unknown]
  - Metastases to lung [Unknown]
  - Pulmonary pain [Not Recovered/Not Resolved]
  - Metastases to bone [Unknown]
  - Dyspnoea [Unknown]
  - Metastasis [Unknown]
  - Metastases to spine [Unknown]
  - Muscle spasms [Recovering/Resolving]
  - Hypersensitivity [Recovering/Resolving]
  - Dactylitis [Recovering/Resolving]
  - Plantar fasciitis [Recovering/Resolving]
  - Illness [Recovering/Resolving]
  - Gait inability [Recovering/Resolving]
  - Insomnia [Recovering/Resolving]
  - Headache [Recovered/Resolved]
  - Vomiting [Recovered/Resolved]
  - Nausea [Recovered/Resolved]
  - Dizziness [Recovered/Resolved]
  - Decreased appetite [Recovered/Resolved]
  - Tachycardia [Unknown]
  - Musculoskeletal chest pain [Unknown]
  - Hepatic cyst [Unknown]
  - Blood pressure abnormal [Unknown]
  - Glossodynia [Unknown]
  - Infective glossitis [Unknown]
  - Feeding disorder [Unknown]
  - Skin discolouration [Not Recovered/Not Resolved]
  - Skin disorder [Unknown]
  - Arthralgia [Unknown]
  - Breast pain [Not Recovered/Not Resolved]
  - Decreased immune responsiveness [Unknown]
  - Bone disorder [Unknown]
  - Pharyngitis [Unknown]
  - Thermal burn [Unknown]
  - Dysphonia [Unknown]
  - Renal pain [Unknown]
  - Biliary colic [Not Recovered/Not Resolved]
  - Ligament sprain [Not Recovered/Not Resolved]
  - Spinal pain [Unknown]
  - Fall [Unknown]
  - Restlessness [Unknown]
  - COVID-19 [Not Recovered/Not Resolved]
  - Lung disorder [Unknown]
  - Discomfort [Unknown]
  - Productive cough [Unknown]
  - Abdominal discomfort [Recovering/Resolving]
  - Chest pain [Unknown]
  - Nail disorder [Not Recovered/Not Resolved]
  - Constipation [Unknown]
  - Oropharyngeal pain [Unknown]
  - Dizziness [Unknown]
  - Headache [Unknown]
  - Malaise [Not Recovered/Not Resolved]
  - Cough [Not Recovered/Not Resolved]
  - Abdominal pain upper [Unknown]
  - Alopecia [Not Recovered/Not Resolved]
  - Injection site pain [Unknown]
  - Drug ineffective [Unknown]

NARRATIVE: CASE EVENT DATE: 20201028
